FAERS Safety Report 12555683 (Version 3)
Quarter: 2016Q3

REPORT INFORMATION
  Report Type: Spontaneous
  Country: US (occurrence: US)
  Receive Date: 20160714
  Receipt Date: 20160908
  Transmission Date: 20161109
  Serious: No
  Sender: FDA-Public Use
  Company Number: US-PFIZER INC-2016336384

PATIENT
  Age: 89 Year
  Sex: Male

DRUGS (13)
  1. INDERAL LA [Suspect]
     Active Substance: PROPRANOLOL HYDROCHLORIDE
     Dosage: UNK
  2. DIGOXIN. [Suspect]
     Active Substance: DIGOXIN
     Dosage: UNK
  3. NORVASC [Suspect]
     Active Substance: AMLODIPINE BESYLATE
     Dosage: UNK
  4. DILTIAZEM HCL [Suspect]
     Active Substance: DILTIAZEM HYDROCHLORIDE
     Dosage: UNK
  5. HCTZ [Suspect]
     Active Substance: HYDROCHLOROTHIAZIDE
     Dosage: UNK
  6. LONGACILLIN [Suspect]
     Active Substance: PENICILLIN G BENZATHINE
     Dosage: UNK
  7. ATENOLOL. [Suspect]
     Active Substance: ATENOLOL
     Dosage: UNK
  8. SULAR [Suspect]
     Active Substance: NISOLDIPINE
     Dosage: UNK
  9. ACCUPRIL [Suspect]
     Active Substance: QUINAPRIL HYDROCHLORIDE
     Dosage: UNK
  10. RELPAX [Suspect]
     Active Substance: ELETRIPTAN HYDROBROMIDE
     Dosage: UNK
  11. NEXIUM [Suspect]
     Active Substance: ESOMEPRAZOLE MAGNESIUM
     Dosage: UNK
  12. ZOCOR [Suspect]
     Active Substance: SIMVASTATIN
     Dosage: UNK
  13. LOTENSINE [Suspect]
     Active Substance: CAPTOPRIL
     Dosage: UNK

REACTIONS (2)
  - Drug hypersensitivity [Unknown]
  - Somnolence [Unknown]
